FAERS Safety Report 12255475 (Version 2)
Quarter: 2016Q2

REPORT INFORMATION
  Report Type: Report from Study
  Country: US (occurrence: US)
  Receive Date: 20160412
  Receipt Date: 20160601
  Transmission Date: 20160815
  Serious: Yes (Death, Hospitalization, Other)
  Sender: FDA-Public Use
  Company Number: US-ASTRAZENECA-2015SF28483

PATIENT
  Age: 31720 Day
  Sex: Female
  Weight: 62.6 kg

DRUGS (17)
  1. RADIATION THERAPY [Concomitant]
     Active Substance: RADIATION THERAPY
  2. LASIX [Concomitant]
     Active Substance: FUROSEMIDE
  3. ALBUTEROL. [Concomitant]
     Active Substance: ALBUTEROL
  4. COUMADIN [Concomitant]
     Active Substance: WARFARIN SODIUM
  5. WARFARIN [Concomitant]
     Active Substance: WARFARIN
  6. ATORVASTATIN [Concomitant]
     Active Substance: ATORVASTATIN
  7. PROTONIX [Concomitant]
     Active Substance: PANTOPRAZOLE SODIUM
  8. IRESSA [Suspect]
     Active Substance: GEFITINIB
     Indication: LUNG NEOPLASM MALIGNANT
     Route: 048
  9. IRESSA [Suspect]
     Active Substance: GEFITINIB
     Indication: LUNG NEOPLASM MALIGNANT
     Route: 048
  10. DIGOXIN. [Concomitant]
     Active Substance: DIGOXIN
  11. ADRIAMYCIN [Concomitant]
     Active Substance: DOXORUBICIN HYDROCHLORIDE
  12. CYTOXAN [Concomitant]
     Active Substance: CYCLOPHOSPHAMIDE
  13. TAXOL [Concomitant]
     Active Substance: PACLITAXEL
  14. METOPROLOL. [Concomitant]
     Active Substance: METOPROLOL
  15. POTASSIUM CHLORIDE. [Concomitant]
     Active Substance: POTASSIUM CHLORIDE
  16. VYTORIN [Concomitant]
     Active Substance: EZETIMIBE\SIMVASTATIN
  17. BABY ASPIRIN [Concomitant]
     Active Substance: ASPIRIN

REACTIONS (14)
  - Laryngeal cancer [Unknown]
  - Death [Fatal]
  - Fatigue [Unknown]
  - Joint swelling [Recovering/Resolving]
  - Cerebrovascular accident [Unknown]
  - Dyspnoea [Unknown]
  - Dry skin [Recovering/Resolving]
  - Iron deficiency anaemia [Unknown]
  - Diarrhoea [Recovering/Resolving]
  - Decreased appetite [Unknown]
  - Device related thrombosis [Unknown]
  - Malignant neoplasm progression [Unknown]
  - Gastrointestinal haemorrhage [Unknown]
  - Lymphoedema [Unknown]

NARRATIVE: CASE EVENT DATE: 20160316
